FAERS Safety Report 10120180 (Version 2)
Quarter: 2014Q2

REPORT INFORMATION
  Report Type: Report from Study
  Country: AU (occurrence: AU)
  Receive Date: 20140426
  Receipt Date: 20140426
  Transmission Date: 20141212
  Serious: Yes (Hospitalization)
  Sender: FDA-Public Use
  Company Number: PHHY2012AU116681

PATIENT
  Sex: Female

DRUGS (2)
  1. CLOZARIL [Suspect]
     Dosage: 350 MG, UNK
     Dates: start: 20061229
  2. CLOZARIL [Suspect]
     Dosage: 550 MG, UNK
     Dates: start: 20081229

REACTIONS (2)
  - Incorrect dose administered [Unknown]
  - Overdose [Unknown]
